FAERS Safety Report 7622102-9 (Version None)
Quarter: 2011Q3

REPORT INFORMATION
  Report Type: 
  Country: None (occurrence: None)
  Receive Date: 20110720
  Receipt Date: 20110216
  Transmission Date: 20111222
  Serious: Yes (Hospitalization, Other)
  Sender: FDA-Public Use
  Company Number: US-BAYER-201040299NA

PATIENT
  Age: 46 Year
  Sex: Female
  Weight: 90.703 kg

DRUGS (12)
  1. YAZ [Suspect]
     Indication: PREMENSTRUAL SYNDROME
  2. PRILOSEC [Concomitant]
     Dosage: 20 MG, UNK
     Route: 048
     Dates: start: 20050101
  3. VICODIN [Concomitant]
     Indication: PAIN
     Dosage: UNK
     Dates: start: 20071219
  4. YASMIN [Suspect]
     Indication: ACNE
     Dosage: UNK
     Route: 048
     Dates: start: 20070401, end: 20090101
  5. YASMIN [Suspect]
     Indication: PREMENSTRUAL SYNDROME
  6. COLAZAL [Concomitant]
     Indication: COLITIS ULCERATIVE
     Dosage: 750 MG, TID
     Route: 048
     Dates: start: 20050101, end: 20101110
  7. AMOXICILLIN [Concomitant]
     Dosage: 500 MG, UNK
     Route: 048
  8. DROSPIRENONE AND ETHINYL ESTRADIOL [Suspect]
     Indication: PREMENSTRUAL SYNDROME
  9. YAZ [Suspect]
     Indication: ACNE
     Dosage: UNK
     Route: 048
     Dates: start: 20070401, end: 20090101
  10. PRILOSEC [Concomitant]
     Dosage: 20 MG, UNK
     Route: 048
     Dates: start: 20050101, end: 20101222
  11. LORATADINE [Concomitant]
     Indication: HYPERSENSITIVITY
     Dosage: 10 MG, QD
     Route: 048
  12. DROSPIRENONE AND ETHINYL ESTRADIOL [Suspect]
     Indication: ACNE
     Dosage: UNK
     Route: 048
     Dates: start: 20070401, end: 20090101

REACTIONS (4)
  - INJURY [None]
  - CHOLECYSTECTOMY [None]
  - CHOLECYSTITIS [None]
  - CHOLELITHIASIS [None]
